FAERS Safety Report 25519518 (Version 2)
Quarter: 2025Q3

REPORT INFORMATION
  Report Type: Spontaneous
  Country: JP (occurrence: JP)
  Receive Date: 20250704
  Receipt Date: 20250828
  Transmission Date: 20251021
  Serious: Yes (Life-Threatening, Hospitalization, Other)
  Sender: SUNOVION
  Company Number: JP-SMPA-2025SPA005134

PATIENT
  Age: 52 Year
  Sex: Female

DRUGS (2)
  1. RELUGOLIX [Suspect]
     Active Substance: RELUGOLIX
     Indication: Anaemia
     Dosage: 40 MG, QD
     Route: 048
  2. RELUGOLIX [Suspect]
     Active Substance: RELUGOLIX
     Indication: Uterine leiomyoma

REACTIONS (3)
  - Abnormal uterine bleeding [Recovered/Resolved]
  - Pelvic organ prolapse [Recovered/Resolved]
  - Off label use [Unknown]

NARRATIVE: CASE EVENT DATE: 20240401
